FAERS Safety Report 4706286-8 (Version None)
Quarter: 2005Q2

REPORT INFORMATION
  Report Type: 
  Country: None (occurrence: None)
  Receive Date: 20050208
  Receipt Date: 20050208
  Transmission Date: 20051028
  Serious: Yes (Other)
  Sender: FDA-Public Use
  Company Number: None

PATIENT
  Sex: Female
  Weight: 108.4097 kg

DRUGS (1)
  1. NAPROXEN SODIUM [Suspect]
     Indication: OSTEOARTHRITIS
     Dosage: 125MG/5ML BID  LIFETIME

REACTIONS (3)
  - DRUG INTOLERANCE [None]
  - STOMACH DISCOMFORT [None]
  - THERAPEUTIC RESPONSE UNEXPECTED WITH DRUG SUBSTITUTION [None]
